FAERS Safety Report 17069642 (Version 1)
Quarter: 2019Q4

REPORT INFORMATION
  Report Type: Spontaneous
  Country: US (occurrence: US)
  Receive Date: 20191125
  Receipt Date: 20191125
  Transmission Date: 20200122
  Serious: No
  Sender: FDA-Public Use
  Company Number: US-ALLERGAN-1907205US

PATIENT

DRUGS (18)
  1. NAMENDA [Suspect]
     Active Substance: MEMANTINE HYDROCHLORIDE
     Indication: PRODUCT USED FOR UNKNOWN INDICATION
     Route: 065
  2. RIVASTIGMINE. [Concomitant]
     Active Substance: RIVASTIGMINE
  3. ANASTROZOLE. [Concomitant]
     Active Substance: ANASTROZOLE
  4. CALCIUM [Concomitant]
     Active Substance: CALCIUM
  5. NORCO [Concomitant]
     Active Substance: ACETAMINOPHEN\HYDROCODONE BITARTRATE
  6. BENADRYL [Concomitant]
     Active Substance: DIPHENHYDRAMINE HYDROCHLORIDE
  7. VITAMIN B12 [Concomitant]
     Active Substance: CYANOCOBALAMIN
  8. KCL [Concomitant]
     Active Substance: POTASSIUM CHLORIDE
  9. JAKAFI [Concomitant]
     Active Substance: RUXOLITINIB
  10. ENALAPRIL [Concomitant]
     Active Substance: ENALAPRIL
  11. ZOLOFT [Suspect]
     Active Substance: SERTRALINE HYDROCHLORIDE
     Indication: PRODUCT USED FOR UNKNOWN INDICATION
     Route: 065
  12. FLEXEN [Concomitant]
  13. TAPAZOLE [Concomitant]
     Active Substance: METHIMAZOLE
  14. ASA [Concomitant]
     Active Substance: ASPIRIN
  15. LORAZEPAM. [Concomitant]
     Active Substance: LORAZEPAM
  16. HERZ ASS [Suspect]
     Active Substance: ASPIRIN
  17. LYRICA [Concomitant]
     Active Substance: PREGABALIN
     Dosage: 50 MG, UNK
     Route: 048
  18. VENLAFAXINE [Concomitant]
     Active Substance: VENLAFAXINE HYDROCHLORIDE

REACTIONS (4)
  - Somnolence [Unknown]
  - Rash [Unknown]
  - Headache [Unknown]
  - Confusional state [Unknown]
